FAERS Safety Report 7740425-X (Version None)
Quarter: 2011Q3

REPORT INFORMATION
  Report Type: 
  Country: None (occurrence: None)
  Receive Date: 20110909
  Receipt Date: 20110830
  Transmission Date: 20111222
  Serious: Yes (Hospitalization)
  Sender: FDA-Public Use
  Company Number: US-BAYER-2011-023276

PATIENT
  Age: 30 Year
  Sex: Female
  Weight: 91 kg

DRUGS (3)
  1. YASMIN [Suspect]
     Indication: CONTRACEPTION
     Dosage: UNK
     Route: 048
     Dates: start: 20040305, end: 20051003
  2. WELLBUTRIN [Concomitant]
     Indication: DEPRESSION
     Dosage: 150 MG, QD
     Dates: start: 20000101
  3. MOTRIN [Concomitant]
     Indication: PAIN
     Dosage: UNK
     Dates: start: 20051001

REACTIONS (6)
  - PULMONARY EMBOLISM [None]
  - INJURY [None]
  - PAIN [None]
  - EMOTIONAL DISTRESS [None]
  - GENERAL PHYSICAL HEALTH DETERIORATION [None]
  - ANXIETY [None]
